FAERS Safety Report 8565188 (Version 2)
Quarter: 2013Q4

REPORT INFORMATION
  Report Type: Spontaneous
  Country: US (occurrence: US)
  Receive Date: 20120516
  Receipt Date: 20131105
  Transmission Date: 20140711
  Serious: Yes (Other)
  Sender: FDA-Public Use
  Company Number: US-ASTRAZENECA-2012SE29502

PATIENT
  Age: 66 Year
  Sex: Female

DRUGS (11)
  1. TOPROL XL [Suspect]
     Indication: BLOOD PRESSURE ABNORMAL
     Route: 048
  2. NEXIUM [Suspect]
     Indication: HIATUS HERNIA
     Route: 048
     Dates: start: 20130916, end: 20130930
  3. NEXIUM [Suspect]
     Indication: GASTROOESOPHAGEAL REFLUX DISEASE
     Route: 048
     Dates: start: 20130916, end: 20130930
  4. LOMOTIL [Concomitant]
     Indication: GASTRIC DISORDER
     Route: 048
  5. PHENERGAN [Concomitant]
     Indication: NAUSEA
     Dosage: PRN
     Route: 048
  6. PEPTO BISMOL [Concomitant]
     Indication: GASTRIC DISORDER
     Dosage: PRN
     Route: 048
  7. DIAZEPAM [Concomitant]
     Indication: ANXIETY
     Dosage: DAILY
     Route: 048
  8. XANAX [Concomitant]
     Indication: ANXIETY
     Dosage: PRN
     Route: 048
  9. ACUPRIL [Concomitant]
     Indication: BLOOD PRESSURE ABNORMAL
     Route: 048
  10. GLUCTROL [Concomitant]
     Indication: BLOOD GLUCOSE ABNORMAL
     Route: 048
  11. TYLENOL [Concomitant]
     Indication: PAIN
     Dosage: PRN
     Route: 048

REACTIONS (11)
  - Neoplasm [Unknown]
  - Oedema mouth [Unknown]
  - Swollen tongue [Unknown]
  - Multiple allergies [Unknown]
  - Diabetes mellitus [Unknown]
  - Malaise [Unknown]
  - Abdominal pain upper [Recovered/Resolved]
  - Weight decreased [Not Recovered/Not Resolved]
  - Blood glucose increased [Recovering/Resolving]
  - Diarrhoea [Recovered/Resolved]
  - Burning sensation [Recovered/Resolved]
